FAERS Safety Report 5558701-8 (Version None)
Quarter: 2007Q4

REPORT INFORMATION
  Report Type: 
  Country: None (occurrence: None)
  Receive Date: 20071214
  Receipt Date: 20070905
  Transmission Date: 20080405
  Serious: No
  Sender: FDA-Public Use
  Company Number: US-ABBOTT-07P-163-0416104-00

PATIENT
  Sex: Female
  Weight: 61.744 kg

DRUGS (3)
  1. HUMIRA [Suspect]
     Indication: CROHN'S DISEASE
     Dosage: LOADING DOSE, ONCE
     Route: 058
     Dates: start: 20070822, end: 20070822
  2. HUMIRA [Suspect]
     Route: 058
     Dates: start: 20070905, end: 20070905
  3. HUMIRA [Suspect]
     Route: 058

REACTIONS (4)
  - CHILLS [None]
  - NAUSEA [None]
  - NECK PAIN [None]
  - OEDEMA PERIPHERAL [None]
